FAERS Safety Report 10922204 (Version 1)
Quarter: 2015Q1

REPORT INFORMATION
  Report Type: Spontaneous
  Country: GB (occurrence: GB)
  Receive Date: 20150317
  Receipt Date: 20150317
  Transmission Date: 20150721
  Serious: No
  Sender: FDA-Public Use
  Company Number: GB-SA-2015SA030608

PATIENT
  Sex: Female

DRUGS (1)
  1. ARAVA [Suspect]
     Active Substance: LEFLUNOMIDE
     Dosage: STRENGTH: 10 MG
     Route: 048
     Dates: end: 201307

REACTIONS (1)
  - Exposure during pregnancy [Unknown]
